FAERS Safety Report 4347641-8 (Version None)
Quarter: 2004Q2

REPORT INFORMATION
  Report Type: 
  Country: None (occurrence: None)
  Receive Date: 20040422
  Receipt Date: 20040409
  Transmission Date: 20050107
  Serious: Yes (Hospitalization, Disabling, Other)
  Sender: FDA-Public Use
  Company Number: 2003016890

PATIENT
  Age: 50 Year
  Sex: Male
  Weight: 115.2136 kg

DRUGS (7)
  1. LIPITOR [Suspect]
     Indication: BLOOD CHOLESTEROL INCREASED
     Dosage: 10 MG (DAILY)
     Dates: start: 20020520, end: 20020524
  2. AMLODIPINE BESYLATE [Concomitant]
  3. PREDNISONE [Concomitant]
  4. KARVEA HCT (HYDROCHLOROTHIAZIDE, IRBESARTAN) [Concomitant]
  5. HYDROCHLOROTHIAZIDE [Concomitant]
  6. VALSARTAN (VALSARTAN) [Concomitant]
  7. ACETYLSALICYLIC ACID SRT [Concomitant]

REACTIONS (57)
  - ACTIVITIES OF DAILY LIVING IMPAIRED [None]
  - ANHEDONIA [None]
  - ARTHRALGIA [None]
  - ATRIOVENTRICULAR BLOCK SECOND DEGREE [None]
  - BACK PAIN [None]
  - BLOOD CALCIUM DECREASED [None]
  - BRONCHITIS [None]
  - CHANGE OF BOWEL HABIT [None]
  - CHROMATURIA [None]
  - DEHYDRATION [None]
  - DENTAL CARIES [None]
  - DRUG EFFECT DECREASED [None]
  - DYSPHAGIA [None]
  - DYSPNOEA [None]
  - DYSPNOEA EXERTIONAL [None]
  - EMOTIONAL DISORDER [None]
  - ERECTILE DYSFUNCTION [None]
  - ERYTHEMA [None]
  - FALL [None]
  - FATIGUE [None]
  - FOOT DEFORMITY [None]
  - GASTRIC ULCER HELICOBACTER [None]
  - GASTRITIS [None]
  - GASTROINTESTINAL MOTILITY DISORDER [None]
  - GASTROOESOPHAGEAL REFLUX DISEASE [None]
  - HAEMORRHOIDS [None]
  - HEPATITIS [None]
  - HEPATITIS C ANTIBODY POSITIVE [None]
  - HYPERTENSION [None]
  - HYPOKALAEMIA [None]
  - INJURY [None]
  - INSOMNIA [None]
  - LUNG DISORDER [None]
  - MOBILITY DECREASED [None]
  - MONOCYTE PERCENTAGE INCREASED [None]
  - MOOD ALTERED [None]
  - MUSCLE RIGIDITY [None]
  - MYOSITIS [None]
  - NERVE CONDUCTION STUDIES ABNORMAL [None]
  - OEDEMA PERIPHERAL [None]
  - OESOPHAGEAL DISORDER [None]
  - POLYMYOSITIS [None]
  - POST PROCEDURAL PAIN [None]
  - PROTHROMBIN TIME PROLONGED [None]
  - RASH [None]
  - RENAL FAILURE [None]
  - RESTRICTIVE PULMONARY DISEASE [None]
  - RHABDOMYOLYSIS [None]
  - SINUS ARRHYTHMIA [None]
  - SKIN HYPERPIGMENTATION [None]
  - SLEEP APNOEA SYNDROME [None]
  - SLUGGISHNESS [None]
  - SWELLING FACE [None]
  - TINEA CRURIS [None]
  - WEIGHT DECREASED [None]
  - WEIGHT INCREASED [None]
  - WHITE BLOOD CELL COUNT INCREASED [None]
